FAERS Safety Report 21653899 (Version 3)
Quarter: 2023Q1

REPORT INFORMATION
  Report Type: Spontaneous
  Country: AT (occurrence: AT)
  Receive Date: 20221129
  Receipt Date: 20230123
  Transmission Date: 20230418
  Serious: Yes (Other)
  Sender: FDA-Public Use
  Company Number: AT-SA-SAC20220203001849

PATIENT
  Age: 46 Year
  Sex: Male
  Weight: 60 kg

DRUGS (6)
  1. FABRAZYME [Suspect]
     Active Substance: AGALSIDASE BETA
     Indication: Fabry^s disease
     Dosage: 35 MG, QOW
     Route: 042
     Dates: start: 20171227
  2. FABRAZYME [Suspect]
     Active Substance: AGALSIDASE BETA
     Dosage: 35 MG, QOW
     Dates: start: 20220117
  3. FABRAZYME [Suspect]
     Active Substance: AGALSIDASE BETA
     Dosage: 35 MG, QOW
     Route: 042
     Dates: start: 20220912, end: 20221220
  4. DESLORATADINE [Concomitant]
     Active Substance: DESLORATADINE
     Indication: Premedication
     Dosage: 5 MG, 1HOUR BEFORE ERT
     Dates: start: 20220117
  5. FAMOTIDINE [Concomitant]
     Active Substance: FAMOTIDINE
     Indication: Premedication
     Dosage: 40 MG, 1 HOURS BEFORE ERT
     Dates: start: 20220117
  6. ACETAMINOPHEN [Concomitant]
     Active Substance: ACETAMINOPHEN
     Indication: Premedication
     Dosage: 1000 MG, 1 HOUR BEFORE ERT
     Dates: start: 20220117

REACTIONS (17)
  - Bradycardia [Unknown]
  - Illness [Unknown]
  - Febrile infection [Recovering/Resolving]
  - Oropharyngeal pain [Recovering/Resolving]
  - Joint swelling [Recovered/Resolved]
  - Condition aggravated [Unknown]
  - Neuralgia [Recovered/Resolved]
  - Symptom recurrence [Unknown]
  - Pain [Unknown]
  - Pain in extremity [Unknown]
  - Pyrexia [Recovered/Resolved]
  - Arthralgia [Recovered/Resolved]
  - Fatigue [Recovering/Resolving]
  - Pyrexia [Recovered/Resolved]
  - Body temperature increased [Recovered/Resolved]
  - Asthenia [Recovered/Resolved]
  - Burning sensation [Recovered/Resolved]

NARRATIVE: CASE EVENT DATE: 20220130
